FAERS Safety Report 8775056 (Version 1)
Quarter: 2012Q4

REPORT INFORMATION
  Report Type: 
  Country: US (occurrence: US)
  Receive Date: 20120910
  Receipt Date: 20120910
  Transmission Date: 20130627
  Serious: Yes (Other)
  Sender: FDA-Public Use
  Company Number: US-JNJFOC-20120901540

PATIENT
  Sex: Female
  Weight: 90.72 kg

DRUGS (9)
  1. REMICADE [Suspect]
     Indication: CROHN^S DISEASE
     Route: 042
     Dates: start: 201204, end: 201205
  2. AZATHIOPRINE [Concomitant]
     Indication: CROHN^S DISEASE
     Route: 048
  3. CARVEDILOL [Concomitant]
     Indication: HYPERTENSION
     Route: 048
  4. SPIRONOLACTONE [Concomitant]
     Indication: HYPERTENSION
     Route: 048
  5. PHENELZINE [Concomitant]
     Indication: ANXIETY
     Dosage: dose strength: 15mg
     Route: 048
  6. WARFARIN [Concomitant]
     Indication: BLOOD DISORDER
     Route: 048
  7. ALPRAZOLAM [Concomitant]
     Indication: ANXIETY
     Dosage: as needed
     Route: 048
  8. FAMOTIDINE [Concomitant]
     Indication: DYSPEPSIA
     Route: 048
  9. B12 INJECTION [Concomitant]
     Indication: VITAMIN B12 DEFICIENCY
     Route: 065

REACTIONS (5)
  - Crohn^s disease [Unknown]
  - Hypothyroidism [Not Recovered/Not Resolved]
  - Myalgia [Not Recovered/Not Resolved]
  - Pharyngitis streptococcal [Not Recovered/Not Resolved]
  - Drug ineffective [Unknown]
